FAERS Safety Report 15398311 (Version 2)
Quarter: 2018Q3

REPORT INFORMATION
  Report Type: Spontaneous
  Country: FI (occurrence: FI)
  Receive Date: 20180918
  Receipt Date: 20180920
  Transmission Date: 20181010
  Serious: Yes (Other)
  Sender: FDA-Public Use
  Company Number: FI-SA-2016SA045448

PATIENT
  Age: 54 Year
  Sex: Male

DRUGS (9)
  1. TOUJEO [Suspect]
     Active Substance: INSULIN GLARGINE
     Dosage: 24 IU, UNK
     Route: 065
  2. TOUJEO [Suspect]
     Active Substance: INSULIN GLARGINE
     Indication: TYPE 1 DIABETES MELLITUS
     Dosage: 15 DF,QD
     Route: 065
     Dates: start: 20160106
  3. TOUJEO [Suspect]
     Active Substance: INSULIN GLARGINE
     Dosage: 22 DF,QD
     Route: 065
  4. THYROXIN [Concomitant]
     Active Substance: LEVOTHYROXINE
     Indication: HYPOTHYROIDISM
     Dosage: UNK, QD
     Route: 065
  5. TOUJEO [Suspect]
     Active Substance: INSULIN GLARGINE
     Dosage: 19 DF,QD
     Route: 065
  6. TOUJEO [Suspect]
     Active Substance: INSULIN GLARGINE
     Dosage: 21 DF,QD
     Route: 065
  7. HUMALOG [Concomitant]
     Active Substance: INSULIN LISPRO
     Indication: TYPE 1 DIABETES MELLITUS
     Dosage: UNK
  8. MICARDIS [Concomitant]
     Active Substance: TELMISARTAN
     Indication: HYPERTENSION
     Dosage: UNK UNK, QD
     Route: 065
  9. LIOTHYRONINE [Concomitant]
     Active Substance: LIOTHYRONINE
     Indication: HYPOTHYROIDISM
     Dosage: UNK UNK, QD
     Route: 065

REACTIONS (9)
  - Blood glucose decreased [Not Recovered/Not Resolved]
  - Abnormal behaviour [Recovered/Resolved]
  - Product use issue [Unknown]
  - Blood glucose increased [Unknown]
  - Loss of consciousness [Recovered/Resolved]
  - Therapeutic response decreased [Unknown]
  - Intentional product misuse [Unknown]
  - Blood glucose decreased [Recovered/Resolved]
  - Blood glucose fluctuation [Not Recovered/Not Resolved]

NARRATIVE: CASE EVENT DATE: 2016
